FAERS Safety Report 6202716-3 (Version None)
Quarter: 2009Q2

REPORT INFORMATION
  Report Type: 
  Country: None (occurrence: None)
  Receive Date: 20090526
  Receipt Date: 20090518
  Transmission Date: 20091009
  Serious: Yes (Disabling, Other)
  Sender: FDA-Public Use
  Company Number: PHHY2009DE09700

PATIENT
  Sex: Female
  Weight: 80 kg

DRUGS (2)
  1. ACLASTA [Suspect]
     Indication: OSTEOPOROSIS
     Dosage: 5 MG ONCE YEARLY
     Route: 042
     Dates: start: 20070101
  2. ACLASTA [Suspect]
     Indication: SPINAL FRACTURE

REACTIONS (3)
  - BACK PAIN [None]
  - OSTEONECROSIS [None]
  - PAIN IN JAW [None]
